FAERS Safety Report 24583989 (Version 1)
Quarter: 2024Q4

REPORT INFORMATION
  Report Type: Spontaneous
  Country: JP (occurrence: JP)
  Receive Date: 20241106
  Receipt Date: 20241106
  Transmission Date: 20250114
  Serious: Yes (Other)
  Sender: BRISTOL-MYERS SQUIBB COMPANY
  Company Number: JP-BRISTOL-MYERS SQUIBB COMPANY-2024-173236

PATIENT
  Age: 7 Decade
  Sex: Female

DRUGS (5)
  1. VIDAZA [Suspect]
     Active Substance: AZACITIDINE
     Indication: Acute myeloid leukaemia
     Dosage: FROM 3RD TO 4TH CYCLE
     Route: 042
  2. VIDAZA [Suspect]
     Active Substance: AZACITIDINE
     Dosage: FROM THE 1ST TO 2ND CYCLE
     Route: 042
  3. VENCLEXTA [Concomitant]
     Active Substance: VENETOCLAX
     Indication: Acute myeloid leukaemia
  4. VENCLEXTA [Concomitant]
     Active Substance: VENETOCLAX
  5. VENCLEXTA [Concomitant]
     Active Substance: VENETOCLAX

REACTIONS (2)
  - Febrile neutropenia [Unknown]
  - Bronchopulmonary aspergillosis [Unknown]
